FAERS Safety Report 7292836-7 (Version None)
Quarter: 2011Q1

REPORT INFORMATION
  Report Type: 
  Country: None (occurrence: None)
  Receive Date: 20110215
  Receipt Date: 20110201
  Transmission Date: 20110831
  Serious: Yes (Other)
  Sender: FDA-Public Use
  Company Number: US-JNJFOC-20110203940

PATIENT

DRUGS (5)
  1. DEXAMETHASONE [Concomitant]
     Route: 065
  2. DEXAMETHASONE [Concomitant]
     Route: 065
  3. DOCETAXEL [Suspect]
     Indication: NEOPLASM
     Dosage: ON DAY 1,8, 15 AT CYCLE 1 (DOSE LEVEL 4A)
     Route: 042
  4. DOXORUBICIN HYDROCHLORIDE [Suspect]
     Indication: NEOPLASM
     Dosage: ON DAY 1 AND 15, CYCLE 1 (DOSE LEVEL 4A)
     Route: 042
  5. DEXAMETHASONE [Concomitant]
     Route: 065

REACTIONS (2)
  - FATIGUE [None]
  - MUSCULAR WEAKNESS [None]
